FAERS Safety Report 4962069-5 (Version None)
Quarter: 2006Q2

REPORT INFORMATION
  Report Type: 
  Country: None (occurrence: None)
  Receive Date: 20060404
  Receipt Date: 20060327
  Transmission Date: 20061013
  Serious: Yes (Hospitalization)
  Sender: FDA-Public Use
  Company Number: US-MERCK-0603USA04449

PATIENT
  Age: 52 Year
  Sex: Male

DRUGS (3)
  1. VIOXX [Suspect]
     Route: 065
     Dates: start: 20020101
  2. ASPIRIN [Concomitant]
     Route: 065
  3. VITAMINS (UNSPECIFIED) [Concomitant]
     Route: 065

REACTIONS (8)
  - BACK INJURY [None]
  - CEREBROVASCULAR ACCIDENT [None]
  - CORONARY ARTERY DISEASE [None]
  - HEADACHE [None]
  - HYPERTENSION [None]
  - JOINT SPRAIN [None]
  - MUSCLE STRAIN [None]
  - ROTATOR CUFF SYNDROME [None]
